FAERS Safety Report 4814130-3 (Version None)
Quarter: 2005Q4

REPORT INFORMATION
  Report Type: 
  Country: None (occurrence: None)
  Receive Date: 20051028
  Receipt Date: 20050705
  Transmission Date: 20060501
  Serious: No
  Sender: FDA-Public Use
  Company Number: US-GLAXOSMITHKLINE-A0564974A

PATIENT
  Sex: Female

DRUGS (3)
  1. ADVAIR DISKUS 100/50 [Suspect]
     Indication: ASTHMA
     Dosage: 1PUFF TWICE PER DAY
     Route: 055
  2. NORTRIPTYLINE HCL [Concomitant]
  3. BUSPAR [Concomitant]

REACTIONS (4)
  - CANDIDIASIS [None]
  - GLOSSITIS [None]
  - THERMAL BURN [None]
  - TONGUE COATED [None]
